FAERS Safety Report 18255311 (Version 5)
Quarter: 2021Q3

REPORT INFORMATION
  Report Type: Spontaneous
  Country: US (occurrence: US)
  Receive Date: 20200910
  Receipt Date: 20210930
  Transmission Date: 20211014
  Serious: Yes (Death, Other)
  Sender: FDA-Public Use
  Company Number: US-PURDUE-USA-2020-0165641

PATIENT
  Age: 57 Year
  Sex: Male

DRUGS (6)
  1. HYDROCODONE BITARTRATE (SIMILAR TO NDA 206627) [Suspect]
     Active Substance: HYDROCODONE BITARTRATE
     Indication: PAIN
     Dosage: UNKNOWN
     Route: 048
     Dates: start: 2003, end: 2013
  2. OXYCONTIN [Suspect]
     Active Substance: OXYCODONE HYDROCHLORIDE
     Indication: PRODUCT USED FOR UNKNOWN INDICATION
     Dosage: UNKNOWN
     Route: 048
  3. TRAMADOL CR TABLETS (RHODES 21?745) [Suspect]
     Active Substance: TRAMADOL
     Indication: PAIN
     Dosage: UNKNOWN
     Route: 048
     Dates: start: 2003, end: 2013
  4. VICODIN [Suspect]
     Active Substance: ACETAMINOPHEN\HYDROCODONE BITARTRATE
     Indication: PAIN
     Dosage: UNKNOWN
     Route: 065
  5. DILAUDID [Suspect]
     Active Substance: HYDROMORPHONE HYDROCHLORIDE
     Indication: PAIN
     Dosage: UNKNOWN
     Route: 048
     Dates: start: 2003
  6. HYDROCODONE BITARTRATE AND ACETAMINOPHEN [Suspect]
     Active Substance: ACETAMINOPHEN\HYDROCODONE BITARTRATE
     Indication: PRODUCT USED FOR UNKNOWN INDICATION
     Dosage: UNKNOWN
     Route: 048

REACTIONS (15)
  - Cholelithiasis [Fatal]
  - Pain [Recovered/Resolved]
  - Personality change [Recovered/Resolved]
  - Gastrointestinal disorder [Recovered/Resolved]
  - Cardiac disorder [Fatal]
  - Lethargy [Recovered/Resolved]
  - Drug dependence [Unknown]
  - Cholecystitis [Fatal]
  - Headache [Recovered/Resolved]
  - General physical health deterioration [Unknown]
  - Unevaluable event [Recovered/Resolved]
  - Chest pain [Recovered/Resolved]
  - Ill-defined disorder [Recovered/Resolved]
  - Acute myocardial infarction [Fatal]
  - Illness [Recovered/Resolved]

NARRATIVE: CASE EVENT DATE: 20130915
